FAERS Safety Report 4504989-1 (Version None)
Quarter: 2004Q4

REPORT INFORMATION
  Report Type: 
  Country: None (occurrence: None)
  Receive Date: 20041116
  Receipt Date: 20041029
  Transmission Date: 20050328
  Serious: Yes (Hospitalization)
  Sender: FDA-Public Use
  Company Number: 2004IC000853

PATIENT
  Age: 64 Year
  Sex: Male

DRUGS (3)
  1. FLUOROURACIL [Suspect]
     Indication: METASTASES TO LIVER
     Dosage: 500 MG; WEEKLY; INTRAVENOUS
     Route: 042
     Dates: start: 20030812, end: 20040310
  2. MITOMYCIN [Suspect]
     Indication: HEPATIC CANCER METASTATIC
     Dosage: 4 MG; WEEKLY; INTRA-ARTERIAL
     Route: 013
     Dates: start: 20030812, end: 20040310
  3. EPIRUBICIN [Suspect]
     Indication: METASTASES TO LIVER
     Dosage: 20 MG; WEEKLY, INTRA-ARTERIAL
     Route: 013
     Dates: start: 20030812, end: 20040310

REACTIONS (2)
  - AORTIC DISSECTION [None]
  - INFUSION RELATED REACTION [None]
